FAERS Safety Report 17713511 (Version 2)
Quarter: 2020Q2

REPORT INFORMATION
  Report Type: Report from Study
  Country: US (occurrence: US)
  Receive Date: 20200427
  Receipt Date: 20200630
  Transmission Date: 20200714
  Serious: Yes (Hospitalization)
  Sender: FDA-Public Use
  Company Number: US-BIOGEN-2020BI00865511

PATIENT
  Age: 41 Year
  Sex: Female

DRUGS (1)
  1. TYSABRI [Suspect]
     Active Substance: NATALIZUMAB
     Indication: MULTIPLE SCLEROSIS
     Dosage: INFUSED OVER 1 HOUR
     Route: 042
     Dates: start: 20190410

REACTIONS (7)
  - Dyspnoea [Unknown]
  - Fall [Recovered/Resolved]
  - Pain [Unknown]
  - Fractured coccyx [Unknown]
  - Pneumonia [Unknown]
  - Confusional state [Unknown]
  - Renal failure [Unknown]

NARRATIVE: CASE EVENT DATE: 20200320
